FAERS Safety Report 10067870 (Version 1)
Quarter: 2014Q2

REPORT INFORMATION
  Report Type: Spontaneous
  Country: US (occurrence: US)
  Receive Date: 20140409
  Receipt Date: 20140409
  Transmission Date: 20141212
  Serious: No
  Sender: FDA-Public Use
  Company Number: US-BAYER-2014-046545

PATIENT
  Age: 74 Year
  Sex: Male

DRUGS (1)
  1. CIPRO 5 % ORAL SUSPENSION [Suspect]
     Indication: INFECTION
     Dosage: UNK
     Route: 048

REACTIONS (1)
  - Wrong technique in drug usage process [None]
